FAERS Safety Report 8075409-8 (Version None)
Quarter: 2012Q1

REPORT INFORMATION
  Report Type: 
  Country: None (occurrence: None)
  Receive Date: 20120127
  Receipt Date: 20120123
  Transmission Date: 20120608
  Serious: Yes (Hospitalization, Other)
  Sender: FDA-Public Use
  Company Number: US-PFIZER INC-2009305726

PATIENT
  Sex: Male

DRUGS (3)
  1. DILANTIN [Suspect]
     Dosage: 300 MG DAILY
     Route: 048
     Dates: start: 20041108, end: 20041125
  2. BENICAR [Concomitant]
     Dosage: 20 MG DAILY
     Dates: start: 20040901, end: 20041128
  3. DILANTIN [Suspect]
     Indication: CONVULSION
     Dosage: 100 MG TWO CAPSULES DAILY AT BED TIME
     Route: 048
     Dates: start: 20041105, end: 20041107

REACTIONS (1)
  - STEVENS-JOHNSON SYNDROME [None]
